FAERS Safety Report 4934184-3 (Version None)
Quarter: 2006Q1

REPORT INFORMATION
  Report Type: 
  Country: None (occurrence: None)
  Receive Date: 20060301
  Receipt Date: 20060221
  Transmission Date: 20060701
  Serious: Yes (Death)
  Sender: FDA-Public Use
  Company Number: USA-2006-0023649

PATIENT
  Age: 47 Year
  Sex: Male

DRUGS (4)
  1. OXYCODONE HYDROCHLORIDE OXYCODONE HYDROCHLORIDE (SIMILAR TO NDA 20-553 [Suspect]
  2. METHADONE HCL [Suspect]
  3. LORAZEPAM [Suspect]
  4. ETHANOL(ETHANOL) [Suspect]

REACTIONS (2)
  - CIRRHOSIS ALCOHOLIC [None]
  - MULTIPLE DRUG OVERDOSE ACCIDENTAL [None]
